FAERS Safety Report 8057664-3 (Version None)
Quarter: 2012Q1

REPORT INFORMATION
  Report Type: 
  Country: None (occurrence: None)
  Receive Date: 20120120
  Receipt Date: 20120109
  Transmission Date: 20120608
  Serious: No
  Sender: FDA-Public Use
  Company Number: US-BIOGENIDEC-2012BI001137

PATIENT
  Sex: Female

DRUGS (5)
  1. TYSABRI [Suspect]
     Route: 042
     Dates: start: 20050207
  2. TYSABRI [Suspect]
     Indication: MULTIPLE SCLEROSIS
     Route: 042
     Dates: start: 19940201
  3. AVONEX [Concomitant]
     Indication: MULTIPLE SCLEROSIS
     Route: 030
     Dates: start: 19940201
  4. AVONEX [Concomitant]
     Route: 030
     Dates: start: 19970805
  5. TYSABRI [Suspect]
     Route: 042
     Dates: start: 20061030, end: 20100423

REACTIONS (4)
  - PAIN [None]
  - OEDEMA PERIPHERAL [None]
  - MULTIPLE SCLEROSIS [None]
  - PRIMARY PROGRESSIVE MULTIPLE SCLEROSIS [None]
